FAERS Safety Report 20505687 (Version 2)
Quarter: 2022Q1

REPORT INFORMATION
  Report Type: Report from Study
  Country: US (occurrence: US)
  Receive Date: 20220223
  Receipt Date: 20220302
  Transmission Date: 20220423
  Serious: Yes (Other)
  Sender: FDA-Public Use
  Company Number: US-JNJFOC-20220236676

PATIENT
  Age: 57 Year
  Sex: Male

DRUGS (4)
  1. SPRAVATO [Suspect]
     Active Substance: ESKETAMINE
     Indication: Depression
  2. SPRAVATO [Suspect]
     Active Substance: ESKETAMINE
     Dosage: 1 DOSE
     Dates: start: 20220124, end: 20220124
  3. SPRAVATO [Suspect]
     Active Substance: ESKETAMINE
     Dosage: 7 DOSES
     Dates: start: 202201, end: 20220211
  4. SPRAVATO [Suspect]
     Active Substance: ESKETAMINE

REACTIONS (3)
  - Dementia [Unknown]
  - Parkinson^s disease [Unknown]
  - Nervousness [Unknown]
